FAERS Safety Report 11545127 (Version 1)
Quarter: 2015Q3

REPORT INFORMATION
  Report Type: Spontaneous
  Country: DE (occurrence: DE)
  Receive Date: 20150924
  Receipt Date: 20150924
  Transmission Date: 20151125
  Serious: Yes (Congenital Anomaly, Other)
  Sender: FDA-Public Use
  Company Number: DE-ASTRAZENECA-2015SE90686

PATIENT
  Sex: Female
  Weight: 3.5 kg

DRUGS (11)
  1. SEROQUEL [Suspect]
     Active Substance: QUETIAPINE FUMARATE
     Indication: MANIA
     Dosage: 100  (MG/D ) SELDOM, IF REQUIRED. 50 OR 100 MG/D. ONCE IN 38 PLUS 4 (24.7.)- QUETIAPINE
     Route: 064
     Dates: start: 20131026, end: 20140724
  2. L-THYROXIN [Concomitant]
     Active Substance: LEVOTHYROXINE SODIUM
     Indication: HYPOTHYROIDISM
     Dosage: 50 [?G/D ], DAILY
     Route: 064
     Dates: start: 20140102, end: 20140627
  3. SEROQUEL [Suspect]
     Active Substance: QUETIAPINE FUMARATE
     Indication: BIPOLAR DISORDER
     Route: 064
     Dates: start: 20140102, end: 20140725
  4. VALPROATE SODIUM. [Suspect]
     Active Substance: VALPROATE SODIUM
     Indication: MANIA
     Route: 064
     Dates: start: 20131026, end: 20140725
  5. SEROQUEL [Suspect]
     Active Substance: QUETIAPINE FUMARATE
     Indication: MANIA
     Route: 064
     Dates: start: 20140102, end: 20140725
  6. NOVORAPID [Concomitant]
     Active Substance: INSULIN ASPART
     Indication: GESTATIONAL DIABETES
     Route: 064
  7. SEROQUEL [Suspect]
     Active Substance: QUETIAPINE FUMARATE
     Indication: BIPOLAR DISORDER
     Dosage: 100  (MG/D ) SELDOM, IF REQUIRED. 50 OR 100 MG/D. ONCE IN 38 PLUS 4 (24.7.)- QUETIAPINE
     Route: 064
     Dates: start: 20131026, end: 20140724
  8. LITHIUM CARBONATE. [Suspect]
     Active Substance: LITHIUM CARBONATE
     Indication: MANIA
     Route: 064
     Dates: start: 20140225, end: 20140725
  9. LITHIUM CARBONATE. [Suspect]
     Active Substance: LITHIUM CARBONATE
     Indication: MANIA
     Dosage: DOSAGE REDUCTION TO 450MG/D
     Route: 064
  10. LITHIUM CARBONATE. [Suspect]
     Active Substance: LITHIUM CARBONATE
     Indication: MANIA
     Route: 064
     Dates: start: 20140107, end: 20140224
  11. ISOPHANE INSULIN [Concomitant]
     Active Substance: INSULIN NOS
     Indication: GESTATIONAL DIABETES
     Route: 064

REACTIONS (5)
  - Foetal exposure during pregnancy [Unknown]
  - Atrial septal defect [Unknown]
  - Foetal anticonvulsant syndrome [Unknown]
  - Dysmorphism [Not Recovered/Not Resolved]
  - Ventricular septal defect [Unknown]

NARRATIVE: CASE EVENT DATE: 20140725
